FAERS Safety Report 8908133 (Version 1)
Quarter: 2012Q4

REPORT INFORMATION
  Report Type: 
  Country: US (occurrence: US)
  Receive Date: 20121113
  Receipt Date: 20121113
  Transmission Date: 20130627
  Serious: No
  Sender: FDA-Public Use
  Company Number: US-PFIZER INC-2012283023

PATIENT
  Age: 46 Year
  Sex: Female
  Weight: 79.37 kg

DRUGS (4)
  1. LYRICA [Suspect]
     Indication: COMPLEX REGIONAL PAIN SYNDROME
     Dosage: 50 mg, 1x/day
     Route: 048
     Dates: start: 20121109
  2. GABAPENTIN [Suspect]
     Indication: COMPLEX REGIONAL PAIN SYNDROME
     Dosage: 300 mg, 1x/day
     Route: 048
     Dates: start: 20121019, end: 201210
  3. LORATADINE [Concomitant]
     Indication: ALLERGY
     Dosage: 10 mg, 1x/day
  4. HYDROCHLOROTHIAZIDE (HCTZ) [Concomitant]
     Indication: BLOOD PRESSURE HIGH
     Dosage: UNK, 1x/day

REACTIONS (3)
  - Feeling drunk [Not Recovered/Not Resolved]
  - Feeling abnormal [Not Recovered/Not Resolved]
  - Disturbance in attention [Not Recovered/Not Resolved]
